FAERS Safety Report 9658963 (Version 1)
Quarter: 2013Q4

REPORT INFORMATION
  Report Type: Spontaneous
  Country: US (occurrence: US)
  Receive Date: 20131031
  Receipt Date: 20131031
  Transmission Date: 20140711
  Serious: No
  Sender: FDA-Public Use
  Company Number: US-009507513-1310USA007669

PATIENT
  Age: 56 Year
  Sex: Male

DRUGS (3)
  1. VICTRELIS [Suspect]
     Indication: HEPATITIS C
     Dosage: 200MG, 4 CAPSULES DAILY
     Route: 048
     Dates: start: 20130404, end: 2013
  2. PEGINTRON [Suspect]
     Indication: HEPATITIS C
     Dosage: 150MG ONCE A WEEK
     Route: 058
     Dates: start: 20130314, end: 2013
  3. REBETOL [Suspect]
     Indication: HEPATITIS C
     Dosage: 200MG 6 CAPSULES DAILY
     Route: 048
     Dates: start: 20130314, end: 2013

REACTIONS (1)
  - Hepatitis C [Not Recovered/Not Resolved]
